FAERS Safety Report 4987991-5 (Version None)
Quarter: 2006Q2

REPORT INFORMATION
  Report Type: 
  Country: None (occurrence: None)
  Receive Date: 20060426
  Receipt Date: 20060413
  Transmission Date: 20061013
  Serious: Yes (Hospitalization)
  Sender: FDA-Public Use
  Company Number: 2005JP001162

PATIENT
  Age: 69 Year
  Sex: Male

DRUGS (3)
  1. PROGRAF [Suspect]
     Indication: RENAL TRANSPLANT
     Dates: start: 20040527
  2. MYCOPHENOLATE MOFETIL [Concomitant]
  3. MIZORIBINE (MIZORIBINE) [Concomitant]

REACTIONS (4)
  - CYTOMEGALOVIRUS ENTEROCOLITIS [None]
  - DIABETES MELLITUS [None]
  - POST PROCEDURAL COMPLICATION [None]
  - URINARY TRACT INFECTION [None]
